FAERS Safety Report 10348290 (Version 2)
Quarter: 2014Q3

REPORT INFORMATION
  Report Type: Spontaneous
  Country: CN (occurrence: None)
  Receive Date: 20140725
  Receipt Date: 20140807
  Transmission Date: 20150326
  Serious: Yes (Death)
  Sender: FDA-Public Use
  Company Number: KAD201407-000795

PATIENT
  Age: 49 Year
  Sex: Male

DRUGS (2)
  1. CARBOPLATIN (CARBOPLATIN) [Suspect]
     Active Substance: CARBOPLATIN
     Indication: SMALL CELL LUNG CANCER
     Dosage: 100 MG, DAY ONE TO FIVE, INTRAVENOUS
     Route: 042
  2. TOPOTECAN [Suspect]
     Active Substance: TOPOTECAN\TOPOTECAN HYDROCHLORIDE
     Indication: SMALL CELL LUNG CANCER
     Dosage: DRIP, 1.2 MG (DAYS ONE TO FIVE), INTRAVENOUS?
     Route: 042
     Dates: start: 201302

REACTIONS (5)
  - Mass [None]
  - White blood cell count decreased [None]
  - Sleep apnoea syndrome [None]
  - Cough [None]
  - Therapeutic response decreased [None]
